FAERS Safety Report 21959560 (Version 1)
Quarter: 2023Q1

REPORT INFORMATION
  Report Type: Spontaneous
  Country: US (occurrence: US)
  Receive Date: 20230206
  Receipt Date: 20230206
  Transmission Date: 20230418
  Serious: Yes (Hospitalization, Other)
  Sender: FDA-Public Use
  Company Number: US-OTSUKA-2023_002758

PATIENT
  Age: 29 Year
  Sex: Male

DRUGS (8)
  1. ABILIFY MAINTENA [Interacting]
     Active Substance: ARIPIPRAZOLE
     Indication: Product used for unknown indication
     Dosage: 400 MG EVERY 4 WEEKS (INITIATED 9 DAYS PRIOR TO ADMISSION)
     Route: 030
  2. FLUOXETINE [Interacting]
     Active Substance: FLUOXETINE HYDROCHLORIDE
     Indication: Product used for unknown indication
     Dosage: 20 MG, QD
     Route: 065
  3. METOPROLOL [Interacting]
     Active Substance: METOPROLOL
     Indication: Product used for unknown indication
     Dosage: 50 MG, BID
     Route: 065
  4. CLONAZEPAM [Interacting]
     Active Substance: CLONAZEPAM
     Indication: Product used for unknown indication
     Dosage: 0.5 MG, BID
     Route: 065
  5. LITHIUM [Suspect]
     Active Substance: LITHIUM
     Indication: Product used for unknown indication
     Dosage: 600 MG, QD (IN MORNING)
     Route: 065
  6. LITHIUM [Suspect]
     Active Substance: LITHIUM
     Dosage: 900 MG, QD (AT BED TIME)
     Route: 065
  7. METFORMIN [Suspect]
     Active Substance: METFORMIN HYDROCHLORIDE
     Indication: Product used for unknown indication
     Dosage: 500 MG, BID
     Route: 065
  8. QUETIAPINE [Concomitant]
     Active Substance: QUETIAPINE
     Indication: Product used for unknown indication
     Dosage: 50 MG, QD (AT BEDTIME)
     Route: 065

REACTIONS (11)
  - Brain oedema [Unknown]
  - Blood lactic acid increased [Unknown]
  - Respiratory failure [Unknown]
  - Mental status changes [Unknown]
  - Hypotension [Unknown]
  - Blood creatinine increased [Unknown]
  - Sinus tachycardia [Unknown]
  - Hypoglycaemia [Unknown]
  - Pneumonia aspiration [Unknown]
  - Drug-genetic interaction [Unknown]
  - Drug interaction [Unknown]
